FAERS Safety Report 15640725 (Version 2)
Quarter: 2018Q4

REPORT INFORMATION
  Report Type: Spontaneous
  Country: US (occurrence: US)
  Receive Date: 20181120
  Receipt Date: 20181203
  Transmission Date: 20190205
  Serious: Yes (Other)
  Sender: FDA-Public Use
  Company Number: US-SA-2018SA316195

PATIENT
  Age: 65 Year
  Sex: Female
  Weight: 70.3 kg

DRUGS (79)
  1. ACTEMRA [Suspect]
     Active Substance: TOCILIZUMAB
  2. HYDROMORPHONE HYDROCHLORIDE. [Suspect]
     Active Substance: HYDROMORPHONE HYDROCHLORIDE
  3. VITAMIN D2 [Concomitant]
     Active Substance: ERGOCALCIFEROL
     Dosage: UNK
     Route: 065
  4. PREVACID [Concomitant]
     Active Substance: LANSOPRAZOLE
     Dosage: UNK
  5. MOBIC [Concomitant]
     Active Substance: MELOXICAM
     Dosage: UNK
     Route: 065
  6. RETIN-A [Concomitant]
     Active Substance: TRETINOIN
     Dosage: UNK
     Route: 065
  7. FLU VACCINE VII [Concomitant]
     Active Substance: INFLUENZA VIRUS VACCINE
     Dosage: UNK
     Route: 065
     Dates: start: 20140214
  8. VITAMIN D3 [Concomitant]
     Active Substance: CHOLECALCIFEROL
     Route: 065
  9. ALPRAZOLAM. [Suspect]
     Active Substance: ALPRAZOLAM
     Dosage: 0.5 MG, TID
     Route: 048
  10. RITUXAN [Suspect]
     Active Substance: RITUXIMAB
  11. ERGOCALCIFEROL. [Concomitant]
     Active Substance: ERGOCALCIFEROL
  12. DIAMOX SEQUELS [Suspect]
     Active Substance: ACETAZOLAMIDE
  13. HEPATITIS B VACCINE [Suspect]
     Active Substance: HEPATITIS B VIRUS VACCINE
     Route: 065
  14. METHOTREXATE. [Suspect]
     Active Substance: METHOTREXATE
     Dosage: UNK UNK, UNK
     Route: 065
  15. PSEUDOEPHEDRINE HYDROCHLORIDE. [Suspect]
     Active Substance: PSEUDOEPHEDRINE HYDROCHLORIDE
     Dosage: UNK UNK, UNK
     Route: 065
  16. ZENPEP [Suspect]
     Active Substance: PANCRELIPASE AMYLASE\PANCRELIPASE LIPASE\PANCRELIPASE PROTEASE
     Dosage: UNK UNK, UNK
     Route: 065
  17. FLEXERIL [CYCLOBENZAPRINE HYDROCHLORIDE] [Concomitant]
     Dosage: UNK
  18. REFRESH [CARMELLOSE] [Concomitant]
     Dosage: UNK
  19. NEXIUM [ESOMEPRAZOLE MAGNESIUM] [Concomitant]
     Dosage: UNK
     Route: 065
  20. NORCO [Concomitant]
     Active Substance: ACETAMINOPHEN\HYDROCODONE BITARTRATE
     Dosage: UNK
     Route: 065
     Dates: start: 20141121
  21. PREGABALIN. [Suspect]
     Active Substance: PREGABALIN
     Dosage: 100 MG, QD
     Route: 048
  22. CETIRIZINE HYDROCHLORIDE. [Suspect]
     Active Substance: CETIRIZINE HYDROCHLORIDE
     Dosage: 10 MG, UNK
     Route: 065
  23. ZIPRASIDONE HYDROCHLORIDE. [Suspect]
     Active Substance: ZIPRASIDONE HYDROCHLORIDE
  24. ACTIFED (PSEUDOEPHEDRINE HYDROCHLORIDE\TRIPROLIDINE HYDROCHLORIDE) [Suspect]
     Active Substance: PSEUDOEPHEDRINE HYDROCHLORIDE\TRIPROLIDINE HYDROCHLORIDE
  25. HUMIRA [Suspect]
     Active Substance: ADALIMUMAB
     Route: 058
  26. ERYTHROMYCIN. [Suspect]
     Active Substance: ERYTHROMYCIN
     Dosage: UNK UNK, UNK
     Route: 065
  27. LASIX [Suspect]
     Active Substance: FUROSEMIDE
     Dosage: UNK UNK, UNK
     Route: 065
  28. TRAMADOL HYDROCHLORIDE. [Suspect]
     Active Substance: TRAMADOL HYDROCHLORIDE
     Dosage: UNK UNK, UNK
     Route: 065
  29. FOLIC ACID. [Concomitant]
     Active Substance: FOLIC ACID
     Dosage: UNK
     Route: 065
  30. ADVAIR HFA [Concomitant]
     Active Substance: FLUTICASONE PROPIONATE\SALMETEROL XINAFOATE
     Dosage: UNK UNK, UNK
     Route: 065
  31. VICODIN [Concomitant]
     Active Substance: ACETAMINOPHEN\HYDROCODONE BITARTRATE
     Dosage: UNK
  32. CALCIUM CARBONATE. [Concomitant]
     Active Substance: CALCIUM CARBONATE
     Dosage: UNK
     Route: 065
  33. PNEUMOCOCCAL VACCINE POLYVALENT NOS [Concomitant]
     Active Substance: PNEUMOCOCCAL VACCINE POLYVALENT
     Dosage: UNK
     Dates: start: 20141114
  34. HYDROCORTISONE. [Concomitant]
     Active Substance: HYDROCORTISONE
     Dosage: UNK
     Route: 065
  35. DELTASONE [DEXAMETHASONE] [Concomitant]
     Dosage: UNK
     Route: 065
  36. ANTIVERT [MECLOZINE HYDROCHLORIDE;NICOTINIC ACID] [Suspect]
     Active Substance: MECLIZINE MONOHYDROCHLORIDE\NIACIN
     Indication: DIZZINESS
     Dosage: 12.5 MG, TID
     Route: 048
  37. PLAQUENIL [Suspect]
     Active Substance: HYDROXYCHLOROQUINE SULFATE
     Dosage: UNK UNK, UNK
     Route: 065
  38. POTASSIUM CHLORIDE. [Suspect]
     Active Substance: POTASSIUM CHLORIDE
     Dosage: UNK UNK, UNK
     Route: 065
  39. MESALAZINE [Suspect]
     Active Substance: MESALAMINE
     Dosage: UNK UNK, UNK
     Route: 065
  40. ENBREL [Suspect]
     Active Substance: ETANERCEPT
     Dosage: UNK UNK, UNK
     Route: 065
  41. TAMIFLU [Concomitant]
     Active Substance: OSELTAMIVIR PHOSPHATE
     Dosage: UNK
     Route: 065
  42. ZOLOFT [Concomitant]
     Active Substance: SERTRALINE HYDROCHLORIDE
     Dosage: UNK UNK, UNK
     Route: 065
  43. NASOCORT [Concomitant]
     Active Substance: BUDESONIDE
     Dosage: UNK
     Route: 065
  44. ISOSORBIDE DINITRATE. [Suspect]
     Active Substance: ISOSORBIDE DINITRATE
     Route: 065
  45. CEFALEXIN [Suspect]
     Active Substance: CEPHALEXIN
     Dosage: UNK UNK, UNK
     Route: 065
  46. BACTROBAN [MUPIROCIN] [Concomitant]
     Dosage: UNK
     Route: 065
  47. RESTASIS [Concomitant]
     Active Substance: CYCLOSPORINE
     Dosage: UNK
  48. TAZACT [PIPERACILLIN SODIUM;TAZOBACTAM SODIUM] [Concomitant]
     Dosage: UNK
  49. ISOPTO TEARS [HYPROMELLOSE] [Concomitant]
     Dosage: UNK
     Route: 065
  50. LAMICTAL [Concomitant]
     Active Substance: LAMOTRIGINE
     Dosage: UNK
     Route: 065
  51. PROTOPIC [Concomitant]
     Active Substance: TACROLIMUS
     Route: 065
  52. CIPROFLOXACIN. [Suspect]
     Active Substance: CIPROFLOXACIN
  53. DOXYCYCLINE. [Suspect]
     Active Substance: DOXYCYCLINE
  54. HYDROCHLOROTHIAZIDE/TRIAMTERENE [Suspect]
     Active Substance: HYDROCHLOROTHIAZIDE\TRIAMTERENE
  55. IRON (SALT NOT SPECIFIED) [Suspect]
     Active Substance: IRON
     Dosage: UNK UNK, UNK
     Route: 065
  56. ZANAFLEX [Concomitant]
     Active Substance: TIZANIDINE HYDROCHLORIDE
     Route: 065
  57. ZINC. [Concomitant]
     Active Substance: ZINC
     Dosage: UNK
     Route: 065
  58. ZADITOR [KETOTIFEN] [Concomitant]
     Dosage: UNK
     Route: 065
  59. ZANTAC [Concomitant]
     Active Substance: RANITIDINE HYDROCHLORIDE
     Dosage: UNK
     Route: 065
  60. ARAVA [Suspect]
     Active Substance: LEFLUNOMIDE
     Dosage: UNK UNK, UNK
     Route: 065
  61. AMPICILLIN [Suspect]
     Active Substance: AMPICILLIN
  62. COLCHICINE. [Suspect]
     Active Substance: COLCHICINE
  63. COMPAZINE [PROCHLORPERAZINE EDISYLATE] [Suspect]
     Active Substance: PROCHLORPERAZINE EDISYLATE
  64. TYLENOL [Concomitant]
     Active Substance: ACETAMINOPHEN
     Dosage: UNK
     Route: 065
  65. SYNTHROID [Concomitant]
     Active Substance: LEVOTHYROXINE SODIUM
     Dosage: UNK
     Route: 065
  66. FOSAMAX [Concomitant]
     Active Substance: ALENDRONATE SODIUM
     Dosage: UNK
  67. VITAMIN D [ERGOCALCIFEROL] [Concomitant]
     Dosage: UNK
     Route: 065
  68. DIAMODE [Concomitant]
     Dosage: UNK
  69. RUBRAMIN [Concomitant]
     Dosage: UNK
  70. VITAMIN B12 [Concomitant]
     Active Substance: CYANOCOBALAMIN
     Dosage: UNK
     Route: 065
  71. SIMPONI ARIA [Suspect]
     Active Substance: GOLIMUMAB
     Dosage: UNK UNK, UNK
     Route: 065
  72. CYCLOSPORINE. [Suspect]
     Active Substance: CYCLOSPORINE
  73. SULFASALAZINE. [Suspect]
     Active Substance: SULFASALAZINE
     Dosage: UNK UNK, UNK
     Route: 065
  74. OXCARBAZEPINE. [Suspect]
     Active Substance: OXCARBAZEPINE
     Dosage: UNK UNK, UNK
     Route: 065
  75. SULFAMETHOXAZOLE/TRIMETHOPRIM [Suspect]
     Active Substance: SULFAMETHOXAZOLE\TRIMETHOPRIM
     Dosage: UNK UNK, UNK
     Route: 065
  76. CELEXA [CITALOPRAM HYDROBROMIDE] [Concomitant]
     Dosage: UNK
     Route: 065
  77. SINGULAIR [Concomitant]
     Active Substance: MONTELUKAST SODIUM
     Dosage: UNK
     Route: 065
  78. PHENERGAN [PROMETHAZINE] [Concomitant]
     Dosage: UNK
  79. SYSTANE (HYPROMELLOSE 2910 (4000 MPA.S)) [Concomitant]
     Active Substance: HYPROMELLOSE 2910 (4000 MPA.S)
     Dosage: UNK
     Route: 065

REACTIONS (54)
  - Sjogren^s syndrome [Unknown]
  - Anaphylactic reaction [Unknown]
  - Skin warm [Unknown]
  - Drug intolerance [Unknown]
  - Dysphagia [Unknown]
  - Pain [Unknown]
  - Visual impairment [Unknown]
  - Dizziness [Unknown]
  - Loss of consciousness [Unknown]
  - Musculoskeletal stiffness [Unknown]
  - Wound [Unknown]
  - Fatigue [Unknown]
  - Ear pain [Unknown]
  - Photophobia [Unknown]
  - Dyspnoea [Unknown]
  - Back pain [Unknown]
  - Interstitial lung disease [Unknown]
  - Arthritis infective [Unknown]
  - Appetite disorder [Unknown]
  - Wheezing [Unknown]
  - Contusion [Unknown]
  - Vomiting [Unknown]
  - Erythema [Unknown]
  - Chills [Unknown]
  - Skin disorder [Unknown]
  - Arthralgia [Unknown]
  - Dysphoria [Unknown]
  - Nausea [Unknown]
  - Hallucination [Unknown]
  - Abdominal discomfort [Unknown]
  - Dry skin [Unknown]
  - Osteoarthritis [Unknown]
  - Pruritus [Unknown]
  - Myalgia [Unknown]
  - Neck pain [Unknown]
  - Headache [Unknown]
  - Haemorrhagic diathesis [Unknown]
  - Oedema [Unknown]
  - Tenderness [Unknown]
  - Sneezing [Unknown]
  - Rhinorrhoea [Unknown]
  - Abdominal pain [Unknown]
  - Asthenia [Unknown]
  - Hypoaesthesia [Unknown]
  - Thinking abnormal [Unknown]
  - Blister [Unknown]
  - Rheumatoid arthritis [Unknown]
  - Drug hypersensitivity [Unknown]
  - Oral pain [Unknown]
  - Diarrhoea [Unknown]
  - Constipation [Unknown]
  - Joint swelling [Unknown]
  - Gait disturbance [Unknown]
  - Rash [Unknown]

NARRATIVE: CASE EVENT DATE: 20110111
